FAERS Safety Report 9366879 (Version 1)
Quarter: 2013Q2

REPORT INFORMATION
  Report Type: Spontaneous
  Country: US (occurrence: US)
  Receive Date: 20130625
  Receipt Date: 20130625
  Transmission Date: 20140414
  Serious: Yes (Hospitalization)
  Sender: FDA-Public Use
  Company Number: US-GLAXOSMITHKLINE-A1027991A

PATIENT
  Sex: Female

DRUGS (10)
  1. ADVAIR [Suspect]
     Indication: CHRONIC OBSTRUCTIVE PULMONARY DISEASE
     Dosage: 1PUFF PER DAY
     Route: 055
  2. VENTOLIN [Suspect]
     Indication: CHRONIC OBSTRUCTIVE PULMONARY DISEASE
     Dosage: 2PUFF AS REQUIRED
     Route: 055
     Dates: start: 2008
  3. SPIRIVA [Concomitant]
  4. ASTELIN [Concomitant]
  5. SINGULAIR [Concomitant]
  6. LIPITOR [Concomitant]
  7. PRESERVISION [Concomitant]
  8. ANTIBIOTICS [Concomitant]
  9. BLOOD PRESSURE MEDICATION [Concomitant]
  10. OXYGEN [Concomitant]

REACTIONS (10)
  - Pulmonary mycosis [Recovering/Resolving]
  - Urinary tract infection fungal [Recovering/Resolving]
  - Haemorrhage [Recovering/Resolving]
  - Gallbladder operation [Recovering/Resolving]
  - Transfusion [Recovering/Resolving]
  - Lung disorder [Recovering/Resolving]
  - Gallbladder disorder [Recovering/Resolving]
  - Asthenia [Recovering/Resolving]
  - Haemoglobin decreased [Recovering/Resolving]
  - Underdose [Unknown]
